FAERS Safety Report 24246287 (Version 1)
Quarter: 2024Q3

REPORT INFORMATION
  Report Type: Spontaneous
  Country: CA (occurrence: CA)
  Receive Date: 20240825
  Receipt Date: 20240825
  Transmission Date: 20241016
  Serious: Yes (Other)
  Sender: TEVA
  Company Number: CA-TEVA-VS-3235652

PATIENT
  Age: 30 Year
  Sex: Female

DRUGS (1)
  1. LISDEXAMFETAMINE [Suspect]
     Active Substance: LISDEXAMFETAMINE
     Indication: Product used for unknown indication
     Route: 065

REACTIONS (7)
  - Mental impairment [Unknown]
  - Pulse abnormal [Unknown]
  - Anxiety [Unknown]
  - Heart rate increased [Unknown]
  - Migraine [Unknown]
  - Thinking abnormal [Unknown]
  - Product substitution issue [Unknown]
